FAERS Safety Report 8520106-5 (Version None)
Quarter: 2012Q3

REPORT INFORMATION
  Report Type: 
  Country: None (occurrence: None)
  Receive Date: 20120719
  Receipt Date: 20120716
  Transmission Date: 20120928
  Serious: No
  Sender: FDA-Public Use
  Company Number: US-PFIZER INC-2012171110

PATIENT
  Sex: Male

DRUGS (6)
  1. AMLODIPINE BESYLATE [Suspect]
     Dosage: UNK
  2. ISOSORBIDE DINITRATE [Suspect]
     Dosage: UNK
  3. FINASTERIDE [Suspect]
     Dosage: UNK
  4. ATENOLOL [Suspect]
     Dosage: UNK
  5. ASPIRIN [Suspect]
     Dosage: UNK
  6. FUROSEMIDE [Suspect]
     Dosage: UNK

REACTIONS (2)
  - DIARRHOEA [None]
  - GASTRIC DISORDER [None]
